FAERS Safety Report 5206771-9 (Version None)
Quarter: 2006Q4

REPORT INFORMATION
  Report Type: 
  Country: None (occurrence: None)
  Receive Date: 20061031
  Receipt Date: 20060330
  Transmission Date: 20070319
  Serious: Yes (Hospitalization)
  Sender: FDA-Public Use
  Company Number: HQWYE425221MAR06

PATIENT
  Age: 71 Year
  Sex: Male

DRUGS (1)
  1. RAPAMUNE [Suspect]
     Dosage: 2MG/1MG EVERY OTHER DAY, ORAL
     Route: 048
     Dates: end: 20060327

REACTIONS (1)
  - PROTEINURIA [None]
